FAERS Safety Report 5650700-0 (Version None)
Quarter: 2008Q1

REPORT INFORMATION
  Report Type: 
  Country: None (occurrence: None)
  Receive Date: 20080304
  Receipt Date: 20080304
  Transmission Date: 20080703
  Serious: No
  Sender: FDA-Public Use
  Company Number: None

PATIENT
  Age: 55 Year
  Sex: Female
  Weight: 120.2032 kg

DRUGS (1)
  1. ACTOS [Suspect]
     Indication: INSULIN RESISTANCE
     Dosage: 2 PILLS 1X DAY
     Dates: start: 20071123, end: 20080110

REACTIONS (2)
  - FLUID RETENTION [None]
  - WEIGHT INCREASED [None]
